FAERS Safety Report 14783299 (Version 2)
Quarter: 2018Q2

REPORT INFORMATION
  Report Type: Report from Study
  Country: LB (occurrence: LB)
  Receive Date: 20180420
  Receipt Date: 20180425
  Transmission Date: 20180711
  Serious: Yes (Hospitalization)
  Sender: FDA-Public Use
  Company Number: PHHY2018LB064099

PATIENT
  Age: 67 Year
  Sex: Male

DRUGS (1)
  1. ENTRESTO [Suspect]
     Active Substance: SACUBITRIL\VALSARTAN
     Indication: PRODUCT USED FOR UNKNOWN INDICATION
     Dosage: 100 MG, BID
     Route: 048
     Dates: start: 20170802

REACTIONS (4)
  - Pulmonary oedema [Recovered/Resolved]
  - Dyspnoea [Unknown]
  - Peripheral swelling [Unknown]
  - Joint swelling [Unknown]

NARRATIVE: CASE EVENT DATE: 201802
